FAERS Safety Report 24218245 (Version 1)
Quarter: 2024Q3

REPORT INFORMATION
  Report Type: Spontaneous
  Country: GB (occurrence: GB)
  Receive Date: 20240816
  Receipt Date: 20240816
  Transmission Date: 20241017
  Serious: Yes (Hospitalization, Other)
  Sender: DR REDDYS
  Company Number: None

PATIENT
  Age: 22 Year
  Sex: Female
  Weight: 67 kg

DRUGS (6)
  1. FLUOXETINE [Suspect]
     Active Substance: FLUOXETINE HYDROCHLORIDE
     Indication: Obsessive-compulsive disorder
     Dates: start: 20201101, end: 20240607
  2. FLUOXETINE [Suspect]
     Active Substance: FLUOXETINE HYDROCHLORIDE
     Dosage: TAKE ONE DAILY
     Dates: start: 202011, end: 202103
  3. FLUOXETINE [Suspect]
     Active Substance: FLUOXETINE HYDROCHLORIDE
     Dosage: WHERE DOSE WAS INCREASED TO ^TAKE TWO DAILY^ AS
     Dates: start: 202103, end: 202206
  4. FLUOXETINE [Suspect]
     Active Substance: FLUOXETINE HYDROCHLORIDE
     Dosage: AND DOCTOR REDUCED DOSE TO ^2 ONE DAY, ONE EVERY OTHER DAY
     Dates: start: 2022
  5. FLUOXETINE [Suspect]
     Active Substance: FLUOXETINE HYDROCHLORIDE
     Dosage: THE DOCTOR FURTHER REDUCED THE DOSE TO ^TAKE ONE DAILY^.
     Dates: start: 2022
  6. FLUOXETINE [Suspect]
     Active Substance: FLUOXETINE HYDROCHLORIDE
     Dosage: THE DOSE WAS REDUCED TO ^TAKE ONE EVERY OTHER DAY^

REACTIONS (3)
  - Petit mal epilepsy [Recovered/Resolved]
  - Seizure [Recovered/Resolved]
  - Depression [Recovered/Resolved]

NARRATIVE: CASE EVENT DATE: 20201101
